FAERS Safety Report 22086844 (Version 2)
Quarter: 2023Q1

REPORT INFORMATION
  Report Type: Report from Study
  Country: US (occurrence: US)
  Receive Date: 20230312
  Receipt Date: 20230331
  Transmission Date: 20230418
  Serious: Yes (Other)
  Sender: FDA-Public Use
  Company Number: US-002147023-NVSC2023US050926

PATIENT
  Sex: Male

DRUGS (1)
  1. ENTRESTO [Suspect]
     Active Substance: SACUBITRIL\VALSARTAN
     Indication: Product used for unknown indication
     Dosage: 1 DOSAGE FORM, BID (24/26 MG)
     Route: 048

REACTIONS (8)
  - Myocardial infarction [Unknown]
  - Coronary artery occlusion [Unknown]
  - Arthralgia [Unknown]
  - Blood pressure systolic increased [Unknown]
  - Dyspnoea [Unknown]
  - Back pain [Unknown]
  - Epicondylitis [Unknown]
  - Fatigue [Unknown]
